FAERS Safety Report 10802075 (Version 2)
Quarter: 2015Q1

REPORT INFORMATION
  Report Type: Spontaneous
  Country: DE (occurrence: DE)
  Receive Date: 20150217
  Receipt Date: 20150304
  Transmission Date: 20150721
  Serious: Yes (Hospitalization, Disabling)
  Sender: FDA-Public Use
  Company Number: DE-JNJFOC-20150204522

PATIENT
  Age: 78 Year
  Sex: Female
  Weight: 77 kg

DRUGS (6)
  1. MARCUMAR [Concomitant]
     Active Substance: PHENPROCOUMON
     Route: 065
     Dates: start: 2007, end: 20140922
  2. RAMIPRIL. [Concomitant]
     Active Substance: RAMIPRIL
     Dosage: TOTAL DAILY DOSE
     Route: 065
  3. XARELTO [Suspect]
     Active Substance: RIVAROXABAN
     Indication: ATRIAL FIBRILLATION
     Route: 048
     Dates: start: 201409
  4. BISOPROLOL [Concomitant]
     Active Substance: BISOPROLOL
     Dosage: TOTAL DAILY DOSE
     Route: 065
  5. NEPHRAL [Concomitant]
     Dosage: TOTAL DAILY DOSE 50/25
     Route: 065
  6. XARELTO [Suspect]
     Active Substance: RIVAROXABAN
     Indication: CEREBROVASCULAR ACCIDENT PROPHYLAXIS
     Route: 048
     Dates: start: 201409

REACTIONS (2)
  - Brain compression [Unknown]
  - Haemorrhage intracranial [Unknown]

NARRATIVE: CASE EVENT DATE: 20141116
